FAERS Safety Report 5680935-2 (Version None)
Quarter: 2008Q1

REPORT INFORMATION
  Report Type: 
  Country: None (occurrence: None)
  Receive Date: 20080326
  Receipt Date: 20080318
  Transmission Date: 20080703
  Serious: Yes (Death)
  Sender: FDA-Public Use
  Company Number: JP-PFIZER INC-2008021688

PATIENT
  Sex: Female
  Weight: 65 kg

DRUGS (3)
  1. NORVASC [Suspect]
     Route: 048
     Dates: start: 19950401, end: 20080225
  2. CARNACULIN [Concomitant]
     Route: 048
     Dates: start: 19950401, end: 20080225
  3. CINAL [Concomitant]
     Route: 048
     Dates: start: 19950401, end: 20080225

REACTIONS (1)
  - MYOCARDIAL INFARCTION [None]
